FAERS Safety Report 4382316-0 (Version None)
Quarter: 2004Q2

REPORT INFORMATION
  Report Type: 
  Country: None (occurrence: None)
  Receive Date: 20040621
  Receipt Date: 20040621
  Transmission Date: 20050107
  Serious: Yes (Hospitalization)
  Sender: FDA-Public Use
  Company Number: None

PATIENT
  Age: 13 Year
  Sex: Male
  Weight: 45 kg

DRUGS (1)
  1. TOPIRMATE [Suspect]
     Indication: CONVULSION
     Dosage: 200 MG PER G-TUBE
     Dates: start: 20040601, end: 20040630

REACTIONS (2)
  - HYPERNATRAEMIA [None]
  - HYPERTHERMIA MALIGNANT [None]
